FAERS Safety Report 9447408 (Version 1)
Quarter: 2013Q3

REPORT INFORMATION
  Report Type: Spontaneous
  Country: US (occurrence: US)
  Receive Date: 20130806
  Receipt Date: 20130806
  Transmission Date: 20140515
  Serious: Yes (Other)
  Sender: FDA-Public Use
  Company Number: FK201302982

PATIENT
  Age: 48 Year
  Sex: Male

DRUGS (3)
  1. IFOSFAMIDE [Suspect]
     Indication: SYNOVIAL SARCOMA
  2. IFOSFAMIDE [Suspect]
     Indication: METASTASES TO LUNG
  3. WARFARIN [Suspect]
     Indication: DEEP VEIN THROMBOSIS

REACTIONS (8)
  - Thrombocytopenia [None]
  - Epistaxis [None]
  - Cellulitis [None]
  - Nephropathy toxic [None]
  - Renal failure chronic [None]
  - Deep vein thrombosis [None]
  - Synovial sarcoma metastatic [None]
  - Malignant neoplasm progression [None]
